FAERS Safety Report 9576201 (Version 1)
Quarter: 2013Q4

REPORT INFORMATION
  Report Type: Spontaneous
  Country: US (occurrence: US)
  Receive Date: 20131001
  Receipt Date: 20131001
  Transmission Date: 20140711
  Serious: No
  Sender: FDA-Public Use
  Company Number: US-AMGEN-USASP2013001296

PATIENT
  Sex: Male
  Weight: 79.37 kg

DRUGS (6)
  1. ENBREL [Suspect]
     Indication: PSORIATIC ARTHROPATHY
     Dosage: 50 MG, QWK
     Route: 058
  2. JANUMET [Concomitant]
     Dosage: 50-500 MG
  3. RAMIPRIL [Concomitant]
     Dosage: 10 MG, UNK
  4. LIPITOR [Concomitant]
     Dosage: 20 MG, UNK
  5. VITAMIN D3 [Concomitant]
     Dosage: 2000 UNIT, UNK
  6. VITAMIN C                          /00008001/ [Concomitant]
     Dosage: 500 MG, UNK

REACTIONS (2)
  - Nasopharyngitis [Unknown]
  - Influenza [Unknown]
